FAERS Safety Report 4933142-2 (Version None)
Quarter: 2006Q1

REPORT INFORMATION
  Report Type: 
  Country: None (occurrence: None)
  Receive Date: 20060301
  Receipt Date: 20060301
  Transmission Date: 20060701
  Serious: Yes (Hospitalization)
  Sender: FDA-Public Use
  Company Number: None

PATIENT
  Age: 52 Year
  Sex: Male
  Weight: 90 kg

DRUGS (1)
  1. IMITREX [Suspect]
     Indication: MIGRAINE
     Dosage: 50 MG 3X/WEEK PO
     Route: 048

REACTIONS (3)
  - ABDOMINAL PAIN [None]
  - INTESTINAL ISCHAEMIA [None]
  - VASOCONSTRICTION [None]
